FAERS Safety Report 17133714 (Version 1)
Quarter: 2019Q4

REPORT INFORMATION
  Report Type: Spontaneous
  Country: HU (occurrence: HU)
  Receive Date: 20191210
  Receipt Date: 20191210
  Transmission Date: 20200122
  Serious: Yes (Other)
  Sender: FDA-Public Use
  Company Number: HU-ROCHE-2488739

PATIENT
  Age: 60 Year
  Sex: Female

DRUGS (2)
  1. ERIVEDGE [Suspect]
     Active Substance: VISMODEGIB
     Indication: BASOSQUAMOUS CARCINOMA
     Route: 065
     Dates: start: 201905
  2. ERIVEDGE [Suspect]
     Active Substance: VISMODEGIB
     Indication: BASAL CELL CARCINOMA
     Route: 065
     Dates: start: 201606, end: 201812

REACTIONS (3)
  - Muscle spasms [Recovered/Resolved]
  - Diffuse alopecia [Unknown]
  - Pneumonia [Unknown]
